FAERS Safety Report 7403864-2 (Version None)
Quarter: 2011Q2

REPORT INFORMATION
  Report Type: 
  Country: None (occurrence: None)
  Receive Date: 20110408
  Receipt Date: 20110331
  Transmission Date: 20111010
  Serious: Yes (Life-Threatening)
  Sender: FDA-Public Use
  Company Number: JP-PFIZER INC-2011067276

PATIENT
  Age: 51 Year
  Sex: Male

DRUGS (7)
  1. DIOVAN [Concomitant]
     Indication: ANGINA UNSTABLE
     Dosage: UNK
     Dates: start: 20050901
  2. LIPITOR [Suspect]
     Indication: HYPERLIPIDAEMIA
     Dosage: 10 MG, 1X/DAY
     Route: 048
     Dates: start: 20060501, end: 20070601
  3. SELBEX [Concomitant]
     Indication: ANGINA UNSTABLE
     Dosage: UNK
     Dates: start: 20050901
  4. FLUVASTATIN [Concomitant]
  5. NICORANDIL [Concomitant]
     Indication: CHEST DISCOMFORT
     Dosage: UNK
     Dates: start: 20060901
  6. ASPIRIN [Concomitant]
     Indication: ANGINA UNSTABLE
     Dosage: UNK
     Dates: start: 20050901
  7. CONIEL [Concomitant]
     Indication: ANGINA UNSTABLE
     Dosage: UNK
     Dates: start: 20050901

REACTIONS (3)
  - BLOOD CREATINE PHOSPHOKINASE INCREASED [None]
  - PRINZMETAL ANGINA [None]
  - MYALGIA [None]
